FAERS Safety Report 20622998 (Version 1)
Quarter: 2022Q1

REPORT INFORMATION
  Report Type: Report from Study
  Country: CR (occurrence: CR)
  Receive Date: 20220322
  Receipt Date: 20220322
  Transmission Date: 20220424
  Serious: Yes (Disabling, Other)
  Sender: FDA-Public Use
  Company Number: CR-NOVARTISPH-NVSC2022CR064844

PATIENT
  Age: 66 Year
  Sex: Female

DRUGS (1)
  1. HYDROCHLOROTHIAZIDE\VALSARTAN [Suspect]
     Active Substance: HYDROCHLOROTHIAZIDE\VALSARTAN
     Indication: Blood pressure abnormal
     Dosage: 1 DOSAGE FORM (STARTED 5 YEARS AGO APPROXIMATELY)
     Route: 065
     Dates: start: 2017

REACTIONS (4)
  - Gait inability [Unknown]
  - COVID-19 [Unknown]
  - Feeling abnormal [Unknown]
  - Renal disorder [Unknown]
